FAERS Safety Report 11021534 (Version 1)
Quarter: 2015Q2

REPORT INFORMATION
  Report Type: Report from Study
  Country: CA (occurrence: CA)
  Receive Date: 20150413
  Receipt Date: 20150413
  Transmission Date: 20150821
  Serious: Yes (Hospitalization)
  Sender: FDA-Public Use
  Company Number: CA-JNJFOC-20150405454

PATIENT
  Age: 45 Year
  Sex: Male
  Weight: 81.65 kg

DRUGS (1)
  1. REMICADE [Suspect]
     Active Substance: INFLIXIMAB
     Indication: CROHN^S DISEASE
     Dosage: 2,6,ONCE EVERY 8 WEEKS.
     Route: 042
     Dates: start: 20150323

REACTIONS (1)
  - Intestinal perforation [Not Recovered/Not Resolved]

NARRATIVE: CASE EVENT DATE: 20150402
